FAERS Safety Report 5917277-3 (Version None)
Quarter: 2008Q4

REPORT INFORMATION
  Report Type: 
  Country: None (occurrence: None)
  Receive Date: 20081014
  Receipt Date: 20080930
  Transmission Date: 20090506
  Serious: Yes (Hospitalization)
  Sender: FDA-Public Use
  Company Number: US-ELI_LILLY_AND_COMPANY-US200810000055

PATIENT
  Age: 83 Year
  Sex: Female

DRUGS (6)
  1. FORTEO [Suspect]
     Indication: OSTEOPOROSIS
     Dosage: 20 UG, DAILY (1/D)
     Dates: start: 20070101
  2. SYNTHROID [Concomitant]
  3. ZOCOR [Concomitant]
     Dosage: 40 MG, UNK
  4. CALCIUM [Concomitant]
  5. TYLENOL /USA/ [Concomitant]
     Dosage: UNK, AS NEEDED
  6. IBUPROFEN [Concomitant]
     Dosage: UNK, AS NEEDED

REACTIONS (6)
  - ABDOMINAL PAIN [None]
  - ASTHENIA [None]
  - DYSPNOEA [None]
  - GASTRITIS [None]
  - INTESTINAL OBSTRUCTION [None]
  - PANCREATITIS [None]
